FAERS Safety Report 9471858 (Version 2)
Quarter: 2013Q3

REPORT INFORMATION
  Report Type: Report from Study
  Country: BR (occurrence: BR)
  Receive Date: 20130822
  Receipt Date: 20130822
  Transmission Date: 20140515
  Serious: Yes (Disabling, Other)
  Sender: FDA-Public Use
  Company Number: BR-ROCHE-1057963

PATIENT
  Age: 61 Year
  Sex: Female
  Weight: 87 kg

DRUGS (29)
  1. RITUXIMAB [Suspect]
     Indication: RHEUMATOID ARTHRITIS
     Route: 042
     Dates: start: 20110414, end: 20130501
  2. RITUXIMAB [Suspect]
     Route: 042
     Dates: start: 201110
  3. RITUXIMAB [Suspect]
     Route: 065
     Dates: start: 20130717
  4. RITUXIMAB [Suspect]
     Route: 065
     Dates: start: 20130730
  5. PREDNISONE [Suspect]
     Indication: PRODUCT USED FOR UNKNOWN INDICATION
     Route: 065
     Dates: start: 20120511
  6. DEFLAZACORT [Concomitant]
     Indication: PRODUCT USED FOR UNKNOWN INDICATION
     Route: 065
  7. TRAMADOL [Concomitant]
     Indication: PRODUCT USED FOR UNKNOWN INDICATION
     Route: 065
  8. CYCLOBENZAPRINE [Concomitant]
     Indication: PRODUCT USED FOR UNKNOWN INDICATION
     Route: 065
  9. CAPTOPRIL [Concomitant]
     Indication: PRODUCT USED FOR UNKNOWN INDICATION
     Route: 065
  10. PANTOPRAZOL [Concomitant]
     Indication: PRODUCT USED FOR UNKNOWN INDICATION
     Route: 065
  11. SIMVASTATIN [Concomitant]
     Route: 065
  12. GLIFAGE [Concomitant]
     Indication: DIABETES MELLITUS
  13. MIOSAN [Concomitant]
  14. BROMOPRIDE [Concomitant]
  15. SIMETHICONE [Concomitant]
  16. OMEPRAZOLE [Concomitant]
  17. CAPTOPRIL [Concomitant]
  18. FUROSEMIDE [Concomitant]
  19. DAFLON (BRAZIL) [Concomitant]
  20. CYCLOPHOSPHAMIDE [Concomitant]
  21. TRAYENTA DUO [Concomitant]
  22. SOLU-MEDROL [Concomitant]
  23. ZOFRAN [Concomitant]
  24. ACETAMINOPHEN [Concomitant]
     Indication: PRODUCT USED FOR UNKNOWN INDICATION
     Route: 065
  25. KOMBIGLYZE [Concomitant]
  26. HYDROCHLOROTHIAZIDE [Concomitant]
  27. AZATHIOPRINE [Concomitant]
  28. AMITRIPTYLINE [Concomitant]
  29. ESTREVA GEL [Concomitant]

REACTIONS (24)
  - Activities of daily living impaired [Not Recovered/Not Resolved]
  - Movement disorder [Not Recovered/Not Resolved]
  - Interstitial lung disease [Not Recovered/Not Resolved]
  - Hepatitis [Unknown]
  - Abdominal pain [Unknown]
  - Diarrhoea [Unknown]
  - Aphthous stomatitis [Unknown]
  - Diabetes mellitus [Not Recovered/Not Resolved]
  - Dyspnoea [Unknown]
  - Arthralgia [Not Recovered/Not Resolved]
  - Pain in jaw [Not Recovered/Not Resolved]
  - Hypoaesthesia [Not Recovered/Not Resolved]
  - Joint stiffness [Not Recovered/Not Resolved]
  - Deformity [Recovered/Resolved]
  - Diabetes mellitus [Recovered/Resolved]
  - Blood pressure fluctuation [Recovered/Resolved]
  - Aphthous stomatitis [Not Recovered/Not Resolved]
  - Fatigue [Not Recovered/Not Resolved]
  - Pain in jaw [Not Recovered/Not Resolved]
  - Mastication disorder [Not Recovered/Not Resolved]
  - Swelling [Unknown]
  - Disease progression [Unknown]
  - Lymphadenopathy [Not Recovered/Not Resolved]
  - Hepatic steatosis [Not Recovered/Not Resolved]
